FAERS Safety Report 6529730-2 (Version None)
Quarter: 2010Q1

REPORT INFORMATION
  Report Type: 
  Country: None (occurrence: None)
  Receive Date: 20100107
  Receipt Date: 20091230
  Transmission Date: 20100710
  Serious: Yes (Other)
  Sender: FDA-Public Use
  Company Number: US-JNJCH-2009033329

PATIENT
  Age: 32 Year
  Sex: Male
  Weight: 68 kg

DRUGS (1)
  1. NASALCROM [Suspect]
     Indication: HYPERSENSITIVITY
     Dosage: TEXT:ONE SPRAY, 2-3 TIMES PER DAY
     Route: 045
     Dates: start: 20091201, end: 20091228

REACTIONS (2)
  - PRODUCT QUALITY ISSUE [None]
  - SINUSITIS [None]
